FAERS Safety Report 19271650 (Version 1)
Quarter: 2021Q2

REPORT INFORMATION
  Report Type: Spontaneous
  Country: US (occurrence: US)
  Receive Date: 20210518
  Receipt Date: 20210518
  Transmission Date: 20210717
  Serious: Yes (Other)
  Sender: FDA-Public Use
  Company Number: US-REGENERON PHARMACEUTICALS, INC.-2021-50146

PATIENT

DRUGS (1)
  1. LIBTAYO [Suspect]
     Active Substance: CEMIPLIMAB-RWLC
     Indication: SQUAMOUS CELL CARCINOMA
     Dosage: 250 MG, EVERY 3 WEEKS
     Dates: start: 202008, end: 202102

REACTIONS (3)
  - Pancytopenia [Unknown]
  - Blood count abnormal [Unknown]
  - Rash [Unknown]

NARRATIVE: CASE EVENT DATE: 202102
